FAERS Safety Report 9786827 (Version 1)
Quarter: 2013Q4

REPORT INFORMATION
  Report Type: Spontaneous
  Country: TW (occurrence: TW)
  Receive Date: 20131227
  Receipt Date: 20131227
  Transmission Date: 20140711
  Serious: Yes (Other)
  Sender: FDA-Public Use
  Company Number: TW-WATSON-2013-23205

PATIENT
  Age: 4 Year
  Sex: Male
  Weight: 28 kg

DRUGS (7)
  1. LIDOCAINE [Suspect]
     Indication: ADENOTONSILLECTOMY
     Dosage: 5 ML OF 2% LIDOCAINE IN EACH TONSIL
  2. LIDOCAINE [Suspect]
     Indication: INDUCTION OF ANAESTHESIA
     Dosage: 20 MG
     Route: 042
  3. LIDOCAINE [Suspect]
     Indication: LOCAL ANAESTHESIA
  4. LIDOCAINE HYDROCHLORIDE 1% WITH EPINEPHRINE (WATSON LABORATORIES) [Suspect]
     Indication: LOCAL ANAESTHESIA
     Dosage: 4 ML
  5. LIDOCAINE HYDROCHLORIDE 1% WITH EPINEPHRINE (WATSON LABORATORIES) [Suspect]
     Indication: ADENOTONSILLECTOMY
  6. EPINEPHRINE W/SALINE [Concomitant]
     Indication: ADENOTONSILLECTOMY
     Dosage: 5 ML FOR EACH TONSIL
  7. EPINEPHRINE W/SALINE [Concomitant]
     Indication: LOCAL ANAESTHESIA

REACTIONS (3)
  - VIIth nerve paralysis [Recovered/Resolved]
  - Accidental overdose [Recovered/Resolved]
  - Extra dose administered [Recovered/Resolved]
